FAERS Safety Report 16158400 (Version 2)
Quarter: 2019Q3

REPORT INFORMATION
  Report Type: Spontaneous
  Country: US (occurrence: US)
  Receive Date: 20190404
  Receipt Date: 20190827
  Transmission Date: 20191004
  Serious: Yes (Other)
  Sender: FDA-Public Use
  Company Number: US-ASTRAZENECA-2019SE50663

PATIENT
  Age: 22087 Day
  Sex: Female
  Weight: 67.1 kg

DRUGS (28)
  1. NEXIUM 24HR [Suspect]
     Active Substance: ESOMEPRAZOLE MAGNESIUM
     Indication: GASTROOESOPHAGEAL REFLUX DISEASE
     Route: 048
     Dates: start: 2006, end: 2015
  2. DUREZOL [Concomitant]
     Active Substance: DIFLUPREDNATE
  3. TYLENOL [Concomitant]
     Active Substance: ACETAMINOPHEN
  4. PHENAZOPYRIDINE. [Concomitant]
     Active Substance: PHENAZOPYRIDINE
  5. ORPHENADRINE CITRATE. [Concomitant]
     Active Substance: ORPHENADRINE CITRATE
  6. LABETALOL [Concomitant]
     Active Substance: LABETALOL\LABETALOL HYDROCHLORIDE
  7. NEXIUM [Suspect]
     Active Substance: ESOMEPRAZOLE MAGNESIUM
     Indication: GASTROOESOPHAGEAL REFLUX DISEASE
     Route: 048
     Dates: start: 2006, end: 2011
  8. FLUTICASONE. [Concomitant]
     Active Substance: FLUTICASONE
  9. NIFEDIPINE. [Concomitant]
     Active Substance: NIFEDIPINE
  10. AMLODIPINE BESYLATE. [Concomitant]
     Active Substance: AMLODIPINE BESYLATE
  11. AZITHROMYCIN ANHYDROUS. [Concomitant]
     Active Substance: AZITHROMYCIN ANHYDROUS
  12. NEXIUM [Suspect]
     Active Substance: ESOMEPRAZOLE MAGNESIUM
     Indication: GASTROOESOPHAGEAL REFLUX DISEASE
     Route: 048
     Dates: start: 2006, end: 2015
  13. NEXIUM 24HR [Suspect]
     Active Substance: ESOMEPRAZOLE MAGNESIUM
     Indication: GASTROOESOPHAGEAL REFLUX DISEASE
     Route: 048
     Dates: start: 2014, end: 2015
  14. OMEPRAZOLE. [Suspect]
     Active Substance: OMEPRAZOLE
     Indication: GASTROOESOPHAGEAL REFLUX DISEASE
     Route: 065
     Dates: start: 2011, end: 2011
  15. AMLODIPINE [Concomitant]
     Active Substance: AMLODIPINE BESYLATE
  16. LISINOPRIL. [Concomitant]
     Active Substance: LISINOPRIL
  17. CLONIDINE. [Concomitant]
     Active Substance: CLONIDINE
  18. IBUPROFEN. [Concomitant]
     Active Substance: IBUPROFEN
  19. NORVASC [Concomitant]
     Active Substance: AMLODIPINE BESYLATE
  20. AMOXICILLIN. [Concomitant]
     Active Substance: AMOXICILLIN
  21. ASPIRIN. [Concomitant]
     Active Substance: ASPIRIN
  22. ULORIC [Concomitant]
     Active Substance: FEBUXOSTAT
  23. TRIAMTERENE. [Concomitant]
     Active Substance: TRIAMTERENE
  24. CYCLOBENZAPRINE. [Concomitant]
     Active Substance: CYCLOBENZAPRINE
  25. SINGULAIR [Concomitant]
     Active Substance: MONTELUKAST SODIUM
  26. FEXOFENADINE [Concomitant]
     Active Substance: FEXOFENADINE HYDROCHLORIDE
  27. TRIAMTERENE. [Concomitant]
     Active Substance: TRIAMTERENE
  28. ALLOPURINOL. [Concomitant]
     Active Substance: ALLOPURINOL

REACTIONS (1)
  - Chronic kidney disease [Not Recovered/Not Resolved]

NARRATIVE: CASE EVENT DATE: 20150603
